FAERS Safety Report 5676821-4 (Version None)
Quarter: 2008Q1

REPORT INFORMATION
  Report Type: 
  Country: None (occurrence: None)
  Receive Date: 20080324
  Receipt Date: 20080219
  Transmission Date: 20080703
  Serious: No
  Sender: FDA-Public Use
  Company Number: US-BAYER-200815035NA

PATIENT
  Age: 33 Year
  Sex: Female

DRUGS (1)
  1. YAZ [Suspect]
     Indication: PREVENTION OF PREMATURE OVULATION
     Route: 048
     Dates: start: 20080115

REACTIONS (4)
  - GLOSSITIS [None]
  - TONGUE BLISTERING [None]
  - TONGUE GEOGRAPHIC [None]
  - TONGUE ULCERATION [None]
